FAERS Safety Report 19173075 (Version 1)
Quarter: 2021Q2

REPORT INFORMATION
  Report Type: Spontaneous
  Country: US (occurrence: US)
  Receive Date: 20210422
  Receipt Date: 20210422
  Transmission Date: 20210717
  Serious: Yes (Other)
  Sender: FDA-Public Use
  Company Number: None

PATIENT
  Age: 77 Year
  Sex: Male

DRUGS (11)
  1. ABIRATERONE. [Suspect]
     Active Substance: ABIRATERONE ACETATE
     Indication: PROSTATE CANCER
     Route: 048
     Dates: start: 20210130
  2. CARVEDILOL. [Concomitant]
     Active Substance: CARVEDILOL
  3. LUPRON [Concomitant]
     Active Substance: LEUPROLIDE ACETATE
  4. ABIRATERONE. [Concomitant]
     Active Substance: ABIRATERONE ACETATE
  5. ALLOPURINOL. [Concomitant]
     Active Substance: ALLOPURINOL
  6. METFORMIN [Concomitant]
     Active Substance: METFORMIN HYDROCHLORIDE
  7. CALCIUM +D [Concomitant]
     Active Substance: CALCIUM\VITAMIN D
  8. LISINOPRIL. [Concomitant]
     Active Substance: LISINOPRIL
  9. ATORVASTATIN [Concomitant]
     Active Substance: ATORVASTATIN
  10. ASPIRIN. [Concomitant]
     Active Substance: ASPIRIN
  11. FLUCONAZOLE. [Concomitant]
     Active Substance: FLUCONAZOLE

REACTIONS (2)
  - Fatigue [None]
  - Muscular weakness [None]

NARRATIVE: CASE EVENT DATE: 20210422
